FAERS Safety Report 8515618 (Version 5)
Quarter: 2013Q1

REPORT INFORMATION
  Report Type: Report from Study
  Country: US (occurrence: US)
  Receive Date: 20120417
  Receipt Date: 20130222
  Transmission Date: 20140127
  Serious: Yes (Other)
  Sender: FDA-Public Use
  Company Number: US-PURDUE-USA-2012-0085221

PATIENT
  Age: 38 Year
  Sex: Female
  Weight: 83.63 kg

DRUGS (7)
  1. OXYCONTIN (NDA 22-272) [Suspect]
     Indication: SURGERY
     Dosage: 10 MG, SEE TEXT
     Route: 048
     Dates: start: 201201
  2. OXYCONTIN (NDA 22-272) [Suspect]
     Indication: INTERVERTEBRAL DISC DEGENERATION
     Dosage: 40 MG, SEE TEXT
     Route: 048
     Dates: start: 201201
  3. OXYCODONE HCL IMMEDIATE RELEASE (91-490) [Suspect]
     Indication: INTERVERTEBRAL DISC DEGENERATION
     Dosage: 5 MG, Q6H PRN
     Route: 048
  4. HYDROXYZINE [Suspect]
     Indication: ANXIETY
     Dosage: 50 MG, PRN
     Route: 048
  5. FEXOFENADINE [Suspect]
     Indication: RHINITIS ALLERGIC
     Dosage: 180 MG, DAILY
     Route: 048
  6. UNISOM [Suspect]
     Indication: INSOMNIA
     Dosage: UNK, SEE TEXT
     Route: 048
  7. NASONEX [Suspect]
     Indication: MULTIPLE ALLERGIES
     Route: 045

REACTIONS (4)
  - Abortion spontaneous [Recovered/Resolved]
  - Uterine haemorrhage [Recovered/Resolved]
  - Uterine spasm [Recovered/Resolved]
  - Exposure during pregnancy [Recovered/Resolved]
